FAERS Safety Report 21907299 (Version 1)
Quarter: 2023Q1

REPORT INFORMATION
  Report Type: Spontaneous
  Country: CR (occurrence: CR)
  Receive Date: 20230125
  Receipt Date: 20230125
  Transmission Date: 20230418
  Serious: Yes (Other)
  Sender: FDA-Public Use
  Company Number: CR-SA-SAC20230124001430

PATIENT
  Age: 82 Year
  Sex: Male

DRUGS (1)
  1. APIDRA [Suspect]
     Active Substance: INSULIN GLULISINE
     Indication: Type 2 diabetes mellitus
     Dosage: UNK UNK, TID
     Route: 058
     Dates: start: 2020

REACTIONS (3)
  - Skin ulcer [Recovered/Resolved]
  - Thrombosis [Recovered/Resolved]
  - Wound [Recovered/Resolved]

NARRATIVE: CASE EVENT DATE: 20221001
